FAERS Safety Report 11363519 (Version 1)
Quarter: 2015Q3

REPORT INFORMATION
  Report Type: Spontaneous
  Country: US (occurrence: None)
  Receive Date: 20150810
  Receipt Date: 20150810
  Transmission Date: 20151125
  Serious: Yes (Death)
  Sender: FDA-Public Use
  Company Number: None

PATIENT
  Age: 34 Year
  Sex: Male

DRUGS (1)
  1. ZOLOFT [Suspect]
     Active Substance: SERTRALINE HYDROCHLORIDE
     Indication: DEPRESSION

REACTIONS (8)
  - Paraesthesia [None]
  - Drug withdrawal syndrome [None]
  - Disorientation [None]
  - Completed suicide [None]
  - Mental impairment [None]
  - Anxiety [None]
  - Tremor [None]
  - Depression [None]

NARRATIVE: CASE EVENT DATE: 20140801
